FAERS Safety Report 13896588 (Version 1)
Quarter: 2017Q3

REPORT INFORMATION
  Report Type: Spontaneous
  Country: US (occurrence: US)
  Receive Date: 20170821
  Receipt Date: 20170821
  Transmission Date: 20171127
  Serious: Yes (Other)
  Sender: FDA-Public Use
  Company Number: None

PATIENT
  Age: 42 Year
  Sex: Female
  Weight: 45 kg

DRUGS (2)
  1. PAIN MESS FOR BACK [Concomitant]
  2. LEVAQUIN [Suspect]
     Active Substance: LEVOFLOXACIN
     Indication: PNEUMONIA
     Route: 042
     Dates: start: 20170811, end: 20170818

REACTIONS (2)
  - Aggression [None]
  - Confusional state [None]

NARRATIVE: CASE EVENT DATE: 20170818
